FAERS Safety Report 9691010 (Version 2)
Quarter: 2013Q4

REPORT INFORMATION
  Report Type: Spontaneous
  Country: BR (occurrence: BR)
  Receive Date: 20131115
  Receipt Date: 20131115
  Transmission Date: 20140711
  Serious: Yes (Hospitalization)
  Sender: FDA-Public Use
  Company Number: BR-PFIZER INC-2013285135

PATIENT
  Sex: Female

DRUGS (2)
  1. DALACIN C [Suspect]
     Dosage: UNK
     Route: 048
  2. CLINDAMYCIN PHOSPHATE [Suspect]
     Dosage: UNK
     Route: 042

REACTIONS (4)
  - Feeling abnormal [Unknown]
  - Burning sensation [Unknown]
  - Pain [Unknown]
  - Medical device complication [Unknown]
